FAERS Safety Report 8571358-7 (Version None)
Quarter: 2012Q2

REPORT INFORMATION
  Report Type: 
  Country: None (occurrence: None)
  Receive Date: 20120418
  Receipt Date: 20081125
  Transmission Date: 20120825
  Serious: Yes (Other)
  Sender: FDA-Public Use
  Company Number: PHEH2008US10014

PATIENT
  Age: 59 Year
  Sex: Male
  Weight: 94.8 kg

DRUGS (2)
  1. ANTIDEPRESSANTS (NO INGREDIENTS/SUBSTANCES) [Concomitant]
  2. DIOVAN HCT [Suspect]

REACTIONS (6)
  - DYSPHAGIA [None]
  - ANGIOEDEMA [None]
  - SWELLING FACE [None]
  - PHARYNGEAL OEDEMA [None]
  - LIP SWELLING [None]
  - PRURITUS [None]
